FAERS Safety Report 8311150-1 (Version None)
Quarter: 2012Q2

REPORT INFORMATION
  Report Type: 
  Country: None (occurrence: None)
  Receive Date: 20120425
  Receipt Date: 20111101
  Transmission Date: 20120825
  Serious: No
  Sender: FDA-Public Use
  Company Number: US-MYLANLABS-2011S1020908

PATIENT
  Age: 63 Year
  Sex: Female

DRUGS (8)
  1. LORAZEPAM [Suspect]
     Indication: ANXIETY
     Route: 048
     Dates: start: 20060101
  2. TYLENOL (CAPLET) [Concomitant]
  3. VITAMIN TAB [Concomitant]
  4. CALCIUM CARBONATE [Concomitant]
  5. LORAZEPAM [Suspect]
     Indication: INSOMNIA
     Route: 048
     Dates: start: 20060101
  6. BENADRYL [Concomitant]
  7. LORAZEPAM [Suspect]
     Route: 048
     Dates: start: 20060101
  8. LORAZEPAM [Suspect]
     Route: 048
     Dates: start: 20060101

REACTIONS (4)
  - MALAISE [None]
  - SEDATION [None]
  - DIARRHOEA [None]
  - NAUSEA [None]
